FAERS Safety Report 4532219-3 (Version None)
Quarter: 2004Q4

REPORT INFORMATION
  Report Type: 
  Country: None (occurrence: None)
  Receive Date: 20041217
  Receipt Date: 20040816
  Transmission Date: 20050328
  Serious: Yes (Death)
  Sender: FDA-Public Use
  Company Number: 04KOR0192

PATIENT
  Sex: Female

DRUGS (3)
  1. AGGRASTAT [Suspect]
     Indication: ACUTE MYOCARDIAL INFARCTION
     Dates: start: 20040507, end: 20040507
  2. AGGRASAT (TIROFIBAN HYDROCHLORIDE) [Suspect]
     Indication: ACUTE MYOCARDIAL INFARCTION
     Dosage: 7 ML/HR, INJECTION
     Dates: start: 20040507, end: 20040508
  3. ACETYLSALICYLIC ACID SRT [Concomitant]

REACTIONS (6)
  - ALANINE AMINOTRANSFERASE ABNORMAL [None]
  - ASPARTATE AMINOTRANSFERASE ABNORMAL [None]
  - CARDIAC FAILURE [None]
  - CARDIOGENIC SHOCK [None]
  - HAEMATOCRIT ABNORMAL [None]
  - HAEMOGLOBIN ABNORMAL [None]
